FAERS Safety Report 18228391 (Version 6)
Quarter: 2022Q2

REPORT INFORMATION
  Report Type: Spontaneous
  Country: US (occurrence: US)
  Receive Date: 20200903
  Receipt Date: 20220419
  Transmission Date: 20220721
  Serious: Yes (Other)
  Sender: FDA-Public Use
  Company Number: US-GILEAD-2020-0493067

PATIENT
  Age: 51 Year
  Sex: Male
  Weight: 61.224 kg

DRUGS (3)
  1. ATRIPLA [Suspect]
     Active Substance: EFAVIRENZ\EMTRICITABINE\TENOFOVIR DISOPROXIL FUMARATE
     Indication: HIV infection
     Dosage: UNK
     Route: 048
     Dates: start: 200811, end: 202003
  2. ATRIPLA [Suspect]
     Active Substance: EFAVIRENZ\EMTRICITABINE\TENOFOVIR DISOPROXIL FUMARATE
     Dosage: UNK
     Route: 048
     Dates: start: 20081101, end: 20181002
  3. BIKTARVY [Concomitant]
     Active Substance: BICTEGRAVIR SODIUM\EMTRICITABINE\TENOFOVIR ALAFENAMIDE FUMARATE
     Dosage: UNK
     Dates: start: 20181002

REACTIONS (6)
  - Osteoporosis [Not Recovered/Not Resolved]
  - Fanconi syndrome acquired [Unknown]
  - Tooth loss [Not Recovered/Not Resolved]
  - Tooth loss [Unknown]
  - Fear-related avoidance of activities [Unknown]
  - Bone density decreased [Unknown]

NARRATIVE: CASE EVENT DATE: 20181002
